FAERS Safety Report 24815045 (Version 2)
Quarter: 2025Q1

REPORT INFORMATION
  Report Type: Spontaneous
  Country: US (occurrence: US)
  Receive Date: 20250107
  Receipt Date: 20250207
  Transmission Date: 20250408
  Serious: Yes (Other)
  Sender: PFIZER
  Company Number: US-PFIZER INC-202500001099

PATIENT
  Age: 81 Year
  Sex: Male
  Weight: 79.83 kg

DRUGS (1)
  1. TIKOSYN [Suspect]
     Active Substance: DOFETILIDE
     Indication: Arrhythmia
     Dosage: 500 MG, 2X/DAY

REACTIONS (3)
  - Diabetes mellitus [Unknown]
  - Cardiac pacemaker insertion [Unknown]
  - Hypertension [Unknown]
